FAERS Safety Report 16059415 (Version 1)
Quarter: 2019Q1

REPORT INFORMATION
  Report Type: Spontaneous
  Country: US (occurrence: US)
  Receive Date: 20190311
  Receipt Date: 20190311
  Transmission Date: 20190418
  Serious: No
  Sender: FDA-Public Use
  Company Number: US-GALDERMA-US19002845

PATIENT
  Age: 74 Year
  Sex: Female

DRUGS (21)
  1. TRI-LUMA [Suspect]
     Active Substance: FLUOCINOLONE ACETONIDE\HYDROQUINONE\TRETINOIN
     Indication: PRODUCT USED FOR UNKNOWN INDICATION
     Route: 061
     Dates: start: 201803, end: 2018
  2. GOCOVRI [Concomitant]
     Active Substance: AMANTADINE
  3. LEFLUNOMIDE. [Concomitant]
     Active Substance: LEFLUNOMIDE
  4. UNITHROID [Concomitant]
     Active Substance: LEVOTHYROXINE SODIUM
  5. CARBIDOPA/LEVODOPA [Concomitant]
     Active Substance: CARBIDOPA\LEVODOPA
     Dosage: 25/100MG
  6. LORAZEPAM. [Concomitant]
     Active Substance: LORAZEPAM
  7. CITRACAL CALCIUM + VITAMIN D [Concomitant]
  8. DESMOPRESSIN [Concomitant]
     Active Substance: DESMOPRESSIN
  9. LINZESS [Concomitant]
     Active Substance: LINACLOTIDE
  10. RASAGILINE. [Concomitant]
     Active Substance: RASAGILINE
  11. ALPHAGAN P [Concomitant]
     Active Substance: BRIMONIDINE TARTRATE
     Dosage: 0.1%
  12. MYRBETRIQ [Concomitant]
     Active Substance: MIRABEGRON
  13. ESTRING [Concomitant]
     Active Substance: ESTRADIOL
  14. RESTASIS [Concomitant]
     Active Substance: CYCLOSPORINE
     Dosage: 0.05%
  15. FUNGI NAIL (CLOTRIMAZOLE) [Concomitant]
     Active Substance: CLOTRIMAZOLE
  16. PROBIOTIC [Concomitant]
     Active Substance: PROBIOTICS NOS
  17. ESCITALOPRAM [Concomitant]
     Active Substance: ESCITALOPRAM OXALATE
  18. ENBREL [Concomitant]
     Active Substance: ETANERCEPT
  19. ERYTHROMYCIN. [Concomitant]
     Active Substance: ERYTHROMYCIN
     Dosage: 3.5G
  20. RECLAST [Concomitant]
     Active Substance: ZOLEDRONIC ACID
  21. MELATONIN [Concomitant]
     Active Substance: MELATONIN

REACTIONS (1)
  - Drug ineffective [Unknown]

NARRATIVE: CASE EVENT DATE: 201804
